FAERS Safety Report 7841498 (Version 2)
Quarter: 2012Q4

REPORT INFORMATION
  Report Type: Report from Study
  Country: JP (occurrence: JP)
  Receive Date: 20110304
  Receipt Date: 20120912
  Transmission Date: 20130627
  Serious: Yes (Death, Other)
  Sender: FDA-Public Use
  Company Number: PHHY2011JP15587

PATIENT
  Age: 67 Year
  Sex: Female
  Weight: 45 kg

DRUGS (9)
  1. ICL670A [Suspect]
     Indication: APLASTIC ANAEMIA
     Dosage: 1000 mg, Daily
     Route: 048
     Dates: start: 20100518, end: 20100816
  2. NEORAL [Concomitant]
     Indication: APLASTIC ANAEMIA
     Dosage: 150 mg, UNK
     Route: 048
     Dates: start: 20090304, end: 20100607
  3. TAKEPRON [Concomitant]
     Indication: PROPHYLAXIS
     Dosage: 30 mg, UNK
     Route: 048
     Dates: start: 20090303, end: 20100916
  4. DIFLUCAN [Concomitant]
     Indication: PROPHYLAXIS
     Dosage: 200 mg, UNK
     Route: 048
     Dates: start: 20090317, end: 20100916
  5. BACTRAMIN [Concomitant]
     Indication: PROPHYLAXIS
     Dosage: 1 DF, UNK
     Route: 048
     Dates: start: 20090317, end: 20100916
  6. ONEALFA [Concomitant]
     Indication: PROPHYLAXIS
     Dosage: 1.0 ug, UNK
     Route: 048
     Dates: end: 20100916
  7. GLAKAY [Concomitant]
     Indication: APLASTIC ANAEMIA
     Dosage: 45 mg, UNK
     Route: 048
     Dates: end: 20100916
  8. MIGLITOL [Concomitant]
     Dosage: 150 mg, UNK
     Route: 048
     Dates: start: 20100414, end: 20100916
  9. RED CELLS MAP [Concomitant]

REACTIONS (7)
  - Pneumonia [Fatal]
  - Disease progression [Fatal]
  - Multi-organ failure [Not Recovered/Not Resolved]
  - Renal impairment [Not Recovered/Not Resolved]
  - Hepatic function abnormal [Not Recovered/Not Resolved]
  - Aspartate aminotransferase increased [None]
  - Alanine aminotransferase increased [None]
